FAERS Safety Report 8295690-X (Version None)
Quarter: 2012Q2

REPORT INFORMATION
  Report Type: 
  Country: None (occurrence: None)
  Receive Date: 20120416
  Receipt Date: 20120403
  Transmission Date: 20120825
  Serious: Yes (Other)
  Sender: FDA-Public Use
  Company Number: AUR-APL-2012-01732

PATIENT
  Age: 61 Year
  Sex: Male

DRUGS (5)
  1. LEVOFLOXACIN [Suspect]
     Indication: BACTERIAL INFECTION
     Dosage: UNKNOWN
  2. LOVENOX [Suspect]
     Indication: DEEP VEIN THROMBOSIS
     Dosage: UNKNOWN
  3. HYDROMORPHONE HCL [Suspect]
     Indication: PRODUCT USED FOR UNKNOWN INDICATION
     Dosage: UNKNOWN
  4. METFORMIN HCL [Suspect]
     Indication: TYPE 2 DIABETES MELLITUS
     Dosage: UNKNOWN
  5. GLYBURIDE [Suspect]
     Indication: TYPE 2 DIABETES MELLITUS
     Dosage: UNKNOWN

REACTIONS (3)
  - UNRESPONSIVE TO STIMULI [None]
  - HYPOGLYCAEMIA [None]
  - DRUG INTERACTION [None]
